FAERS Safety Report 12727928 (Version 2)
Quarter: 2016Q3

REPORT INFORMATION
  Report Type: Spontaneous
  Country: US (occurrence: US)
  Receive Date: 20160909
  Receipt Date: 20160919
  Transmission Date: 20161109
  Serious: Yes (Hospitalization, Other)
  Sender: FDA-Public Use
  Company Number: US-SHIONOGI, INC.-2016000862

PATIENT
  Age: 56 Year
  Sex: Female
  Weight: 55.33 kg

DRUGS (2)
  1. OSPHENA [Suspect]
     Active Substance: OSPEMIFENE
     Indication: ATROPHIC VULVOVAGINITIS
     Dosage: 60 MG, QD
     Route: 048
     Dates: start: 20150108, end: 20151023
  2. OSPHENA [Suspect]
     Active Substance: OSPEMIFENE
     Indication: OFF LABEL USE

REACTIONS (2)
  - Off label use [Unknown]
  - Vaginal cancer [Recovered/Resolved]

NARRATIVE: CASE EVENT DATE: 20151023
